FAERS Safety Report 10009089 (Version 1)
Quarter: 2014Q1

REPORT INFORMATION
  Report Type: Spontaneous
  Country: GB (occurrence: GB)
  Receive Date: 20140313
  Receipt Date: 20140313
  Transmission Date: 20141002
  Serious: Yes (Hospitalization)
  Sender: FDA-Public Use
  Company Number: GB-ACTAVIS-2014-04301

PATIENT
  Age: 78 Year
  Sex: Female

DRUGS (1)
  1. INDAPAMIDE (UNKNOWN) [Suspect]
     Indication: HYPERTENSION
     Dosage: 2.5 MG, DAILY
     Route: 048
     Dates: start: 20140206, end: 20140214

REACTIONS (2)
  - Hyponatraemia [Recovering/Resolving]
  - Hypokalaemia [Recovering/Resolving]
